FAERS Safety Report 25304227 (Version 2)
Quarter: 2025Q3

REPORT INFORMATION
  Report Type: Spontaneous
  Country: EU (occurrence: EU)
  Receive Date: 20250513
  Receipt Date: 20250908
  Transmission Date: 20251020
  Serious: Yes (Disabling)
  Sender: ACCORD
  Company Number: None

PATIENT
  Age: 72 Year
  Sex: Female
  Weight: 50 kg

DRUGS (1)
  1. ATORVASTATIN [Suspect]
     Active Substance: ATORVASTATIN
     Indication: Hypercholesterolaemia
     Dosage: STRENGTH: 10 MG
     Dates: start: 20240410, end: 20241210

REACTIONS (1)
  - Amyotrophic lateral sclerosis [Not Recovered/Not Resolved]

NARRATIVE: CASE EVENT DATE: 20240701
